FAERS Safety Report 10854675 (Version 1)
Quarter: 2015Q1

REPORT INFORMATION
  Report Type: Spontaneous
  Country: DE (occurrence: DE)
  Receive Date: 20150223
  Receipt Date: 20150223
  Transmission Date: 20150721
  Serious: Yes (Hospitalization, Other)
  Sender: FDA-Public Use
  Company Number: DE-UCBSA-2015004778

PATIENT
  Age: 68 Year
  Sex: Female
  Weight: 50 kg

DRUGS (2)
  1. KEPPRA [Suspect]
     Active Substance: LEVETIRACETAM
     Indication: PRODUCT USED FOR UNKNOWN INDICATION
     Dosage: 500 MG, 4 TABLETS, TOTAL DOSE: 2000 MG
     Route: 048
  2. ZONEGRAN [Suspect]
     Active Substance: ZONISAMIDE
     Indication: PRODUCT USED FOR UNKNOWN INDICATION
     Dosage: 1000 MG/D, (20 TABLETS IN 2 DAYS) TOTAL DOSE: 2000 MG (20 TABLETS)
     Route: 048

REACTIONS (3)
  - Somnolence [Unknown]
  - Disorientation [Unknown]
  - Renal failure [Unknown]

NARRATIVE: CASE EVENT DATE: 201502
